FAERS Safety Report 11444890 (Version 1)
Quarter: 2015Q3

REPORT INFORMATION
  Report Type: Spontaneous
  Country: FR (occurrence: FR)
  Receive Date: 20150902
  Receipt Date: 20150902
  Transmission Date: 20151125
  Serious: Yes (Hospitalization)
  Sender: FDA-Public Use
  Company Number: FR-ASTRAZENECA-2015SE83008

PATIENT
  Age: 853 Month
  Sex: Female

DRUGS (10)
  1. ESOMEPRAZOLE [Suspect]
     Active Substance: ESOMEPRAZOLE
     Route: 048
  2. STILNOX [Suspect]
     Active Substance: ZOLPIDEM TARTRATE
     Route: 048
     Dates: end: 20150809
  3. FOSAMAX [Suspect]
     Active Substance: ALENDRONATE SODIUM
     Route: 048
     Dates: end: 20150809
  4. TENORMIN [Suspect]
     Active Substance: ATENOLOL
     Route: 048
     Dates: end: 20150809
  5. LAROXYL [Suspect]
     Active Substance: AMITRIPTYLINE
     Route: 048
     Dates: end: 20150809
  6. AMIODARONE [Suspect]
     Active Substance: AMIODARONE
     Route: 048
     Dates: start: 201303, end: 20150808
  7. SPASFON [Concomitant]
     Active Substance: PHLOROGLUCINOL
     Route: 048
  8. TAREG [Suspect]
     Active Substance: VALSARTAN
     Route: 048
     Dates: end: 20150808
  9. XARELTO [Suspect]
     Active Substance: RIVAROXABAN
     Route: 048
     Dates: end: 20150809
  10. GAVISCON [Suspect]
     Active Substance: ALUMINUM HYDROXIDE\MAGNESIUM CARBONATE
     Route: 048

REACTIONS (5)
  - Respiratory distress [Recovered/Resolved]
  - Lung disorder [Recovering/Resolving]
  - Pyrexia [Unknown]
  - C-reactive protein increased [Unknown]
  - Procalcitonin increased [Unknown]

NARRATIVE: CASE EVENT DATE: 201508
